FAERS Safety Report 4879910-7 (Version None)
Quarter: 2006Q1

REPORT INFORMATION
  Report Type: 
  Country: None (occurrence: None)
  Receive Date: 20060111
  Receipt Date: 20060102
  Transmission Date: 20060701
  Serious: Yes (Other)
  Sender: FDA-Public Use
  Company Number: 2006001961

PATIENT
  Age: 3 Month
  Sex: Female
  Weight: 5.4432 kg

DRUGS (2)
  1. INFANT'S PEDIACARE DECONGESTANT AND COUGH DROPS (PSEUDOEPHEDRINE, DEXT [Suspect]
     Indication: COUGH
     Dosage: 5-6 ML EVERY 4 HOURS, ORAL
     Route: 048
     Dates: start: 20060101
  2. PARACETAMOL [Concomitant]

REACTIONS (2)
  - CRYING [None]
  - PSYCHOMOTOR HYPERACTIVITY [None]
